FAERS Safety Report 13289333 (Version 1)
Quarter: 2017Q1

REPORT INFORMATION
  Report Type: Spontaneous
  Country: CN (occurrence: CN)
  Receive Date: 20170302
  Receipt Date: 20170302
  Transmission Date: 20170428
  Serious: Yes (Hospitalization)
  Sender: FDA-Public Use
  Company Number: CN-ROCHE-1900573

PATIENT
  Age: 1 Year
  Sex: Male
  Weight: 8 kg

DRUGS (3)
  1. GLUCOSE [Concomitant]
     Active Substance: DEXTROSE
     Dosage: AS SOLVENT 5 %
     Route: 041
     Dates: start: 20160304, end: 20160314
  2. SODIUM CHLORIDE. [Concomitant]
     Active Substance: SODIUM CHLORIDE
     Dosage: ELECTROLYTE SUPPLY
     Route: 041
     Dates: start: 20160304, end: 20160314
  3. ROCEPHIN [Suspect]
     Active Substance: CEFTRIAXONE SODIUM
     Indication: PNEUMONIA
     Route: 041
     Dates: start: 20160304, end: 20160314

REACTIONS (1)
  - Dermatitis allergic [Recovering/Resolving]

NARRATIVE: CASE EVENT DATE: 20160313
